FAERS Safety Report 7166023-7 (Version None)
Quarter: 2010Q4

REPORT INFORMATION
  Report Type: 
  Country: None (occurrence: None)
  Receive Date: 20101216
  Receipt Date: 20101208
  Transmission Date: 20110411
  Serious: No
  Sender: FDA-Public Use
  Company Number: US-BIOGENIDEC-2010BI043241

PATIENT
  Sex: Female

DRUGS (1)
  1. TYSABRI [Suspect]
     Indication: MULTIPLE SCLEROSIS
     Route: 042
     Dates: start: 20100312

REACTIONS (7)
  - APHASIA [None]
  - EAR DISCOMFORT [None]
  - FALL [None]
  - HEARING IMPAIRED [None]
  - MEMORY IMPAIRMENT [None]
  - OPTIC NERVE DISORDER [None]
  - VISION BLURRED [None]
